FAERS Safety Report 4507222-X (Version None)
Quarter: 2004Q4

REPORT INFORMATION
  Report Type: 
  Country: None (occurrence: None)
  Receive Date: 20041025
  Receipt Date: 20040625
  Transmission Date: 20050328
  Serious: Yes (Hospitalization)
  Sender: FDA-Public Use
  Company Number: US-JNJFOC-20040505213

PATIENT
  Age: 46 Year
  Sex: Female

DRUGS (5)
  1. INFLIXIMAB  (INFLIXIMAB, RECOMBINANT) LYOPHILIZED POWDER [Suspect]
     Indication: RHEUMATOID ARTHRITIS
     Dosage: 1 IN 7 WEEKS, INTRAVENOUS
     Route: 042
     Dates: start: 20001122
  2. METHOTREXATE [Concomitant]
  3. FOLIC ACID [Concomitant]
  4. PREMARIN [Concomitant]
  5. NASAL SPRAY DAILY [Concomitant]

REACTIONS (1)
  - CHOLELITHIASIS [None]
